FAERS Safety Report 10501310 (Version 2)
Quarter: 2014Q4

REPORT INFORMATION
  Report Type: Report from Study
  Country: ZA (occurrence: ZA)
  Receive Date: 20141007
  Receipt Date: 20141007
  Transmission Date: 20150528
  Serious: Yes (Hospitalization)
  Sender: FDA-Public Use
  Company Number: ZA-NOVOPROD-423245

PATIENT
  Age: 51 Year
  Sex: Male
  Weight: 91 kg

DRUGS (2)
  1. INSULIN DETEMIR FLEXPEN [Suspect]
     Active Substance: INSULIN DETEMIR
     Indication: TYPE 2 DIABETES MELLITUS
     Dosage: 60 IU, SINGLE (NIGHT TIME)
     Route: 065
     Dates: start: 20130311
  2. NOVORAPID [Concomitant]
     Active Substance: INSULIN ASPART
     Indication: TYPE 2 DIABETES MELLITUS
     Dosage: 92 IU, QD (BREAKFAST 32, LUNCH 30 AND SUPPER 30)
     Route: 058

REACTIONS (1)
  - Emphysema [Not Recovered/Not Resolved]
